FAERS Safety Report 22079462 (Version 1)
Quarter: 2023Q1

REPORT INFORMATION
  Report Type: Report from Study
  Country: BR (occurrence: BR)
  Receive Date: 20230309
  Receipt Date: 20230309
  Transmission Date: 20230418
  Serious: Yes (Other)
  Sender: FDA-Public Use
  Company Number: BR-002147023-NVSC2023BR050491

PATIENT
  Sex: Female

DRUGS (1)
  1. AMLODIPINE\VALSARTAN [Suspect]
     Active Substance: AMLODIPINE\VALSARTAN
     Indication: Hypertension
     Dosage: UNK, CONT (160/5MG) (STARTED A LONG TIME AGO)
     Route: 065

REACTIONS (5)
  - Deafness [Not Recovered/Not Resolved]
  - Ear disorder [Not Recovered/Not Resolved]
  - Labyrinthitis [Recovering/Resolving]
  - Nervousness [Unknown]
  - Memory impairment [Unknown]
